FAERS Safety Report 14137156 (Version 1)
Quarter: 2017Q4

REPORT INFORMATION
  Report Type: Spontaneous
  Country: IT (occurrence: IT)
  Receive Date: 20171027
  Receipt Date: 20171027
  Transmission Date: 20180321
  Serious: Yes (Hospitalization)
  Sender: FDA-Public Use
  Company Number: PHHY2017IT158029

PATIENT
  Age: 5 Year
  Sex: Male

DRUGS (2)
  1. AMOXICILLIN+CLAVULANATE [Suspect]
     Active Substance: AMOXICILLIN\CLAVULANATE POTASSIUM
     Indication: PHARYNGOTONSILLITIS
     Dosage: 50 MG/KG, QD
     Route: 048
     Dates: start: 20110205, end: 20110210
  2. FROBEN [Concomitant]
     Active Substance: FLURBIPROFEN
     Indication: PRODUCT USED FOR UNKNOWN INDICATION
     Dosage: 23.5 ML, UNK
     Route: 048
     Dates: start: 20110206, end: 20110209

REACTIONS (6)
  - Blister [Recovering/Resolving]
  - Petechiae [Recovering/Resolving]
  - Skin discolouration [Recovering/Resolving]
  - Oedema peripheral [Recovering/Resolving]
  - Pain in extremity [Recovering/Resolving]
  - Oedema genital [Recovering/Resolving]

NARRATIVE: CASE EVENT DATE: 20110206
